FAERS Safety Report 23360326 (Version 1)
Quarter: 2024Q1

REPORT INFORMATION
  Report Type: Spontaneous
  Country: KR (occurrence: KR)
  Receive Date: 20240103
  Receipt Date: 20240103
  Transmission Date: 20240409
  Serious: Yes (Other)
  Sender: FDA-Public Use
  Company Number: KR-CKD-20231222002

PATIENT
  Age: 76 Year
  Sex: Male

DRUGS (1)
  1. CLONAZEPAM [Suspect]
     Active Substance: CLONAZEPAM
     Dosage: TAKE 4 TABLETS A DAY. HAS BEEN TAKING RIVOTRIL FOR ABOUT 10 YEARS?DAILY DOSE: 4 DOSAGE FORM

REACTIONS (4)
  - Glaucoma [Unknown]
  - Stupor [Unknown]
  - Rapid eye movement sleep behaviour disorder [Unknown]
  - Muscular weakness [Unknown]

NARRATIVE: CASE EVENT DATE: 20230101
